FAERS Safety Report 8178309-8 (Version None)
Quarter: 2012Q1

REPORT INFORMATION
  Report Type: 
  Country: None (occurrence: None)
  Receive Date: 20120301
  Receipt Date: 20120227
  Transmission Date: 20120608
  Serious: Yes (Hospitalization)
  Sender: FDA-Public Use
  Company Number: FR-PFIZER INC-2012050412

PATIENT
  Age: 67 Year
  Sex: Male

DRUGS (9)
  1. EFFEXOR XR [Suspect]
     Dosage: 112.5 MG DAILY
     Route: 048
     Dates: start: 20120104, end: 20120109
  2. EFFEXOR XR [Suspect]
     Dosage: UNK
     Route: 048
     Dates: start: 20120111, end: 20120111
  3. EFFEXOR XR [Suspect]
     Dosage: UNK
     Route: 048
     Dates: start: 20120116, end: 20120116
  4. EFFEXOR XR [Suspect]
     Dosage: 75 MG DAILY
     Route: 048
     Dates: start: 20111228, end: 20120103
  5. EFFEXOR XR [Suspect]
     Dosage: 75 MG DAILY
     Route: 048
     Dates: start: 20120110, end: 20120110
  6. EFFEXOR XR [Suspect]
     Dosage: UNK
     Route: 048
     Dates: start: 20120112, end: 20120115
  7. EFFEXOR XR [Suspect]
     Indication: DEPRESSION
     Dosage: 37.5 MG DAILY
     Route: 048
     Dates: start: 20111224, end: 20111227
  8. RISPERDAL [Suspect]
     Indication: MAJOR DEPRESSION
     Dosage: 1 MG, 1X/DAY
     Route: 048
     Dates: start: 20111224, end: 20111226
  9. LOXAPINE HCL [Concomitant]
     Indication: MAJOR DEPRESSION
     Dosage: 120 MG DAILY
     Route: 048
     Dates: start: 20111223, end: 20111224

REACTIONS (1)
  - PARKINSONISM [None]
